FAERS Safety Report 12186523 (Version 2)
Quarter: 2016Q2

REPORT INFORMATION
  Report Type: Spontaneous
  Country: CA (occurrence: CA)
  Receive Date: 20160317
  Receipt Date: 20160405
  Transmission Date: 20160815
  Serious: Yes (Other)
  Sender: FDA-Public Use
  Company Number: CA-ROCHE-1725984

PATIENT
  Sex: Female

DRUGS (4)
  1. XOLAIR [Suspect]
     Active Substance: OMALIZUMAB
     Indication: ASTHMA
     Route: 058
     Dates: start: 20110809
  2. ADVAIR HFA [Concomitant]
     Active Substance: FLUTICASONE PROPIONATE\SALMETEROL XINAFOATE
  3. NASONEX [Concomitant]
     Active Substance: MOMETASONE FUROATE
  4. UNIPHYL [Concomitant]
     Active Substance: THEOPHYLLINE ANHYDROUS

REACTIONS (12)
  - Ear pain [Unknown]
  - Cataract [Unknown]
  - Middle insomnia [Unknown]
  - Wheezing [Unknown]
  - Speech disorder [Unknown]
  - Nasal oedema [Unknown]
  - Asthma [Unknown]
  - Productive cough [Unknown]
  - Swollen tongue [Unknown]
  - Forced expiratory volume decreased [Unknown]
  - Pharyngeal disorder [Unknown]
  - Weight increased [Unknown]

NARRATIVE: CASE EVENT DATE: 2012
